FAERS Safety Report 18439218 (Version 1)
Quarter: 2020Q4

REPORT INFORMATION
  Report Type: Spontaneous
  Country: US (occurrence: US)
  Receive Date: 20201029
  Receipt Date: 20201029
  Transmission Date: 20210114
  Serious: No
  Sender: FDA-Public Use
  Company Number: US-AUROBINDO-AUR-APL-2020-028423

PATIENT
  Sex: Female

DRUGS (1)
  1. CARVEDILOL TABLETS 3.125 MG [Suspect]
     Active Substance: CARVEDILOL
     Indication: BLOOD PRESSURE MEASUREMENT
     Dosage: UNK
     Route: 065

REACTIONS (1)
  - Drug ineffective [Unknown]
